FAERS Safety Report 12609343 (Version 1)
Quarter: 2016Q3

REPORT INFORMATION
  Report Type: Report from Study
  Country: US (occurrence: US)
  Receive Date: 20160801
  Receipt Date: 20160801
  Transmission Date: 20161109
  Serious: Yes (Other)
  Sender: FDA-Public Use
  Company Number: US-ROCHE-772056

PATIENT
  Age: 58 Year
  Sex: Female
  Weight: 70 kg

DRUGS (3)
  1. ETOPOSIDE. [Suspect]
     Active Substance: ETOPOSIDE
     Indication: SMALL CELL LUNG CANCER
     Dosage: 100 MG/M2, QDX3D/21DC; ADMINISTERED OVER 2 HOURS ON DAYS 1-3
     Route: 042
     Dates: start: 20100728, end: 20101103
  2. CISPLATIN. [Suspect]
     Active Substance: CISPLATIN
     Indication: SMALL CELL LUNG CANCER
     Dosage: 75 MG/M2, Q21D ; ADMINISTERED OVER 2 HOURS ON DAY 1
     Route: 042
     Dates: start: 20100728, end: 20101103
  3. VISMODEGIB [Suspect]
     Active Substance: VISMODEGIB
     Indication: SMALL CELL LUNG CANCER
     Route: 048
     Dates: start: 20100728, end: 20101103

REACTIONS (2)
  - Hyponatraemia [Unknown]
  - Neutrophil count decreased [Unknown]

NARRATIVE: CASE EVENT DATE: 20101006
